FAERS Safety Report 4793663-2 (Version None)
Quarter: 2005Q4

REPORT INFORMATION
  Report Type: 
  Country: None (occurrence: None)
  Receive Date: 20051006
  Receipt Date: 20050923
  Transmission Date: 20060501
  Serious: Yes (Other)
  Sender: FDA-Public Use
  Company Number: 2005118137

PATIENT
  Age: 23 Year
  Sex: Male
  Weight: 99.7913 kg

DRUGS (7)
  1. GEODON [Suspect]
     Indication: DEPRESSION
     Dosage: 80 MG (40 MG, 2 IN 1 D), ORAL
     Route: 048
     Dates: start: 20050802, end: 20050819
  2. BENADRYL [Suspect]
     Indication: CONVULSION
     Dosage: 50 MG (50 MG, ONCE), INTRAVENOUS
     Route: 042
     Dates: start: 20050819, end: 20050819
  3. BENZODAZEPINE DERIVATIVES (DENZODIAZEPINE DERIVATIVES) [Suspect]
     Indication: ILL-DEFINED DISORDER
  4. PAXIL [Concomitant]
  5. DALMANE [Concomitant]
  6. ATIVAN (LORZEPAM) [Concomitant]
  7. METHADONE HCL [Concomitant]

REACTIONS (10)
  - ASTHENIA [None]
  - CONVULSION [None]
  - DRUG HYPERSENSITIVITY [None]
  - FATIGUE [None]
  - FEELING ABNORMAL [None]
  - IMPRISONMENT [None]
  - INSOMNIA [None]
  - MUSCLE SPASMS [None]
  - POSTURE ABNORMAL [None]
  - TREATMENT NONCOMPLIANCE [None]
